FAERS Safety Report 8911185 (Version 2)
Quarter: 2013Q4

REPORT INFORMATION
  Report Type: Spontaneous
  Country: US (occurrence: US)
  Receive Date: 20121116
  Receipt Date: 20131217
  Transmission Date: 20140711
  Serious: No
  Sender: FDA-Public Use
  Company Number: US-GLAXOSMITHKLINE-A0989750A

PATIENT
  Sex: Female

DRUGS (1)
  1. VOTRIENT [Suspect]
     Indication: RENAL CANCER
     Dosage: 400MG PER DAY
     Route: 048

REACTIONS (16)
  - Joint swelling [Unknown]
  - Local swelling [Unknown]
  - Pain [Unknown]
  - Adverse event [Unknown]
  - Weight increased [Unknown]
  - Abdominal tenderness [Unknown]
  - Abdominal pain [Unknown]
  - Constipation [Unknown]
  - Rhinorrhoea [Unknown]
  - Nasopharyngitis [Unknown]
  - Sinus congestion [Unknown]
  - Headache [Unknown]
  - Off label use [Unknown]
  - Musculoskeletal disorder [Unknown]
  - Tooth loss [Not Recovered/Not Resolved]
  - Gingival recession [Not Recovered/Not Resolved]
